FAERS Safety Report 15607701 (Version 1)
Quarter: 2018Q4

REPORT INFORMATION
  Report Type: Report from Study
  Country: CA (occurrence: CA)
  Receive Date: 20181112
  Receipt Date: 20181112
  Transmission Date: 20190205
  Serious: Yes (Death)
  Sender: FDA-Public Use
  Company Number: CA-ROCHE-2213676

PATIENT
  Age: 74 Year
  Sex: Male

DRUGS (24)
  1. ACTEMRA [Suspect]
     Active Substance: TOCILIZUMAB
     Indication: RHEUMATOID ARTHRITIS
     Route: 042
     Dates: start: 20120601
  2. ACTEMRA [Suspect]
     Active Substance: TOCILIZUMAB
     Route: 042
     Dates: start: 20120907
  3. ACTEMRA [Suspect]
     Active Substance: TOCILIZUMAB
     Route: 042
     Dates: start: 20160926
  4. ACTEMRA [Suspect]
     Active Substance: TOCILIZUMAB
     Route: 042
     Dates: start: 20160609
  5. PLAVIX [Concomitant]
     Active Substance: CLOPIDOGREL BISULFATE
  6. K-DUR [Concomitant]
     Active Substance: POTASSIUM CHLORIDE
  7. ACTEMRA [Suspect]
     Active Substance: TOCILIZUMAB
     Route: 042
     Dates: start: 20160707
  8. PREDNISONE. [Concomitant]
     Active Substance: PREDNISONE
  9. ELAVIL (AMITRIPTYLINE) [Concomitant]
  10. ACETAMINOPHEN. [Concomitant]
     Active Substance: ACETAMINOPHEN
  11. VENTOLIN [Concomitant]
     Active Substance: ALBUTEROL SULFATE
  12. ACTEMRA [Suspect]
     Active Substance: TOCILIZUMAB
     Route: 042
     Dates: start: 20151222
  13. OXYCONTIN [Concomitant]
     Active Substance: OXYCODONE HYDROCHLORIDE
  14. SERTRALINE [Concomitant]
     Active Substance: SERTRALINE HYDROCHLORIDE
  15. ACTEMRA [Suspect]
     Active Substance: TOCILIZUMAB
     Route: 042
     Dates: start: 20160119
  16. LYRICA [Concomitant]
     Active Substance: PREGABALIN
  17. PANTOLOC [Concomitant]
     Active Substance: PANTOPRAZOLE SODIUM
  18. FLOMAX [Concomitant]
     Active Substance: TAMSULOSIN HYDROCHLORIDE
  19. FLOVENT [Concomitant]
     Active Substance: FLUTICASONE PROPIONATE
  20. ACTEMRA [Suspect]
     Active Substance: TOCILIZUMAB
     Dosage: ON 13/SEP/2018, THE PATIENT RECEIVED MOST RECENT DOSE OF TOCILIZUMAB
     Route: 042
     Dates: start: 20161031
  21. TERAZOSIN [Concomitant]
     Active Substance: TERAZOSIN\TERAZOSIN HYDROCHLORIDE
  22. ACTEMRA [Suspect]
     Active Substance: TOCILIZUMAB
     Route: 042
     Dates: start: 20151125
  23. ACTEMRA [Suspect]
     Active Substance: TOCILIZUMAB
     Route: 042
     Dates: start: 20170503
  24. ATIVAN [Concomitant]
     Active Substance: LORAZEPAM

REACTIONS (1)
  - Myocardial infarction [Fatal]

NARRATIVE: CASE EVENT DATE: 201811
